FAERS Safety Report 8360930-5 (Version None)
Quarter: 2012Q2

REPORT INFORMATION
  Report Type: 
  Country: None (occurrence: None)
  Receive Date: 20120515
  Receipt Date: 20120510
  Transmission Date: 20120825
  Serious: Yes (Hospitalization)
  Sender: FDA-Public Use
  Company Number: DK-ROCHE-1067989

PATIENT
  Sex: Female

DRUGS (3)
  1. VINORELBINE [Suspect]
     Indication: NON-SMALL CELL LUNG CANCER
  2. AVASTIN [Suspect]
     Indication: NON-SMALL CELL LUNG CANCER
  3. CARBOPLATIN [Suspect]
     Indication: NON-SMALL CELL LUNG CANCER

REACTIONS (5)
  - WOUND [None]
  - STREPTOCOCCAL INFECTION [None]
  - FALL [None]
  - THERMAL BURN [None]
  - IMPAIRED HEALING [None]
